FAERS Safety Report 10593932 (Version 2)
Quarter: 2015Q1

REPORT INFORMATION
  Report Type: Spontaneous
  Country: JP (occurrence: JP)
  Receive Date: 20141119
  Receipt Date: 20150313
  Transmission Date: 20150720
  Serious: Yes (Hospitalization)
  Sender: FDA-Public Use
  Company Number: JP-BAYER-2014-168905

PATIENT
  Age: 36 Year
  Sex: Female

DRUGS (2)
  1. UNFRACTIONATED HEPARIN [Concomitant]
     Active Substance: HEPARIN SODIUM
     Indication: HABITUAL ABORTION
     Dosage: UNK, UNK
  2. BAYASPIRIN [Suspect]
     Active Substance: ASPIRIN
     Indication: HABITUAL ABORTION
     Dosage: UNK UNK, UNK
     Route: 048

REACTIONS (3)
  - Placenta accreta [Recovered/Resolved]
  - Maternal exposure during pregnancy [None]
  - Product use issue [None]
